FAERS Safety Report 4329613-2 (Version None)
Quarter: 2004Q1

REPORT INFORMATION
  Report Type: 
  Country: None (occurrence: None)
  Receive Date: 20040331
  Receipt Date: 20040331
  Transmission Date: 20041129
  Serious: Yes (Other)
  Sender: FDA-Public Use
  Company Number: None

PATIENT
  Age: 67 Year
  Sex: Female
  Weight: 77.1115 kg

DRUGS (1)
  1. NIFEDIPINE [Suspect]
     Indication: HYPERTENSION
     Dosage: ONE DAILY
     Dates: start: 20040225, end: 20040310

REACTIONS (3)
  - ARRHYTHMIA [None]
  - DRUG LEVEL BELOW THERAPEUTIC [None]
  - PHARMACEUTICAL PRODUCT COMPLAINT [None]
